FAERS Safety Report 20768505 (Version 2)
Quarter: 2022Q2

REPORT INFORMATION
  Report Type: Spontaneous
  Country: FR (occurrence: FR)
  Receive Date: 20220429
  Receipt Date: 20220512
  Transmission Date: 20220720
  Serious: Yes (Hospitalization)
  Sender: FDA-Public Use
  Company Number: FR-NOVARTISPH-NVSC2022FR098437

PATIENT
  Age: 47 Year
  Sex: Male

DRUGS (30)
  1. OLANZAPINE [Suspect]
     Active Substance: OLANZAPINE
     Indication: Schizophrenia
     Dosage: 30 MG, QD
     Route: 048
     Dates: start: 20220104, end: 20220107
  2. OLANZAPINE [Suspect]
     Active Substance: OLANZAPINE
     Dosage: 40 MG, QD
     Route: 048
     Dates: start: 20220114, end: 20220118
  3. OLANZAPINE [Suspect]
     Active Substance: OLANZAPINE
     Dosage: 45 MG, QD
     Route: 048
     Dates: start: 20220119, end: 20220201
  4. OLANZAPINE [Suspect]
     Active Substance: OLANZAPINE
     Dosage: 20 MG, QD
     Route: 048
     Dates: start: 20220208, end: 20220215
  5. OLANZAPINE [Suspect]
     Active Substance: OLANZAPINE
     Dosage: 30 MG, QD
     Route: 048
     Dates: start: 20220202, end: 20220207
  6. CLOZAPINE [Suspect]
     Active Substance: CLOZAPINE
     Indication: Schizophrenia
     Dosage: 100 MG, QD
     Route: 048
     Dates: start: 20220208, end: 20220209
  7. CLOZAPINE [Suspect]
     Active Substance: CLOZAPINE
     Dosage: 150 MG, QD
     Route: 048
     Dates: start: 20220215, end: 20220216
  8. CLOZAPINE [Suspect]
     Active Substance: CLOZAPINE
     Dosage: 200 MG, QD
     Route: 048
     Dates: start: 20220218, end: 20220221
  9. CLOZAPINE [Suspect]
     Active Substance: CLOZAPINE
     Dosage: 175 MG, QD
     Route: 048
     Dates: start: 20220217, end: 20220217
  10. CLOZAPINE [Suspect]
     Active Substance: CLOZAPINE
     Dosage: 75 MG, QD
     Route: 048
     Dates: start: 20220205, end: 20220207
  11. CLOZAPINE [Suspect]
     Active Substance: CLOZAPINE
     Dosage: 125 MG, QD
     Route: 048
     Dates: start: 20220210, end: 20220211
  12. CLOZAPINE [Suspect]
     Active Substance: CLOZAPINE
     Dosage: 25 MG, QD
     Route: 048
     Dates: start: 20220201, end: 20220202
  13. CLOZAPINE [Suspect]
     Active Substance: CLOZAPINE
     Dosage: 50 MG, QD
     Route: 048
     Dates: start: 20220203, end: 20220204
  14. CLOZAPINE [Suspect]
     Active Substance: CLOZAPINE
     Dosage: 250 MG, QD
     Route: 048
     Dates: start: 20220224, end: 20220224
  15. CLOZAPINE [Suspect]
     Active Substance: CLOZAPINE
     Dosage: 300 MG, QD
     Route: 048
     Dates: start: 20220227
  16. ATROPINE SULFATE [Suspect]
     Active Substance: ATROPINE SULFATE
     Indication: Salivary hypersecretion
     Dosage: UNK UNK, QD (2 DROPS DAILY)
     Route: 048
     Dates: start: 20220221
  17. CHLORPROMAZINE [Suspect]
     Active Substance: CHLORPROMAZINE
     Indication: Schizophrenia
     Dosage: UNK (650 MG/J)
     Route: 048
     Dates: start: 20220114
  18. VALPROATE SODIUM [Suspect]
     Active Substance: VALPROATE SODIUM
     Indication: Schizophrenia
     Dosage: 2000 MG, QD
     Route: 048
     Dates: start: 20220104, end: 20220131
  19. VALPROATE SODIUM [Suspect]
     Active Substance: VALPROATE SODIUM
     Dosage: 1000 MG
     Route: 048
     Dates: start: 20220201
  20. HALOPERIDOL [Suspect]
     Active Substance: HALOPERIDOL
     Indication: Schizophrenia
     Dosage: 20 MG, QD
     Route: 048
     Dates: start: 20220114, end: 20220119
  21. HALOPERIDOL [Suspect]
     Active Substance: HALOPERIDOL
     Dosage: 45 MG, QD
     Route: 048
     Dates: start: 20220130
  22. LITHIUM [Suspect]
     Active Substance: LITHIUM
     Indication: Schizophrenia
     Dosage: 600 MG, QD
     Route: 048
     Dates: start: 20220118, end: 20220130
  23. LITHIUM [Suspect]
     Active Substance: LITHIUM
     Dosage: 800 MG, QD
     Route: 048
     Dates: start: 20220131
  24. LITHIUM [Suspect]
     Active Substance: LITHIUM
     Dosage: 400 MG, QD
     Route: 048
     Dates: start: 20220114, end: 20220117
  25. LOXAPINE SUCCINATE [Suspect]
     Active Substance: LOXAPINE SUCCINATE
     Indication: Schizophrenia
     Dosage: 600 MG, QD
     Route: 048
     Dates: start: 20220104, end: 20220114
  26. LOXAPINE SUCCINATE [Suspect]
     Active Substance: LOXAPINE SUCCINATE
     Dosage: 750 MG, QD
     Route: 048
     Dates: start: 20220117
  27. DIAZEPAM [Suspect]
     Active Substance: DIAZEPAM
     Indication: Schizophrenia
     Dosage: UNK, QD (90 DROPS)
     Route: 048
     Dates: start: 20220104, end: 20220215
  28. DIAZEPAM [Suspect]
     Active Substance: DIAZEPAM
     Dosage: UNK, QD (120 DROPS)
     Route: 048
     Dates: start: 20220216
  29. POLYETHYLENE GLYCOLS [Concomitant]
     Active Substance: POLYETHYLENE GLYCOLS
     Indication: Product used for unknown indication
     Dosage: UNK
     Route: 065
     Dates: start: 20220104
  30. LOVENOX [Concomitant]
     Active Substance: ENOXAPARIN SODIUM
     Indication: Product used for unknown indication
     Dosage: UNK (SOLUTION FOR INJECTION)
     Route: 065
     Dates: start: 20220104

REACTIONS (3)
  - Faecaloma [Recovering/Resolving]
  - Peritonitis [Recovering/Resolving]
  - Intestinal obstruction [Recovering/Resolving]

NARRATIVE: CASE EVENT DATE: 20220201
